FAERS Safety Report 4446659-4 (Version None)
Quarter: 2004Q3

REPORT INFORMATION
  Report Type: 
  Country: None (occurrence: None)
  Receive Date: 20040910
  Receipt Date: 20040903
  Transmission Date: 20050211
  Serious: Yes (Hospitalization)
  Sender: FDA-Public Use
  Company Number: US-MERCK-0409USA00273

PATIENT
  Age: 71 Year
  Sex: Male

DRUGS (3)
  1. ASPIRIN [Concomitant]
     Route: 065
  2. VIOXX [Suspect]
     Indication: ARTHRITIS
     Route: 048
  3. VITAMINS (UNSPECIFIED) [Concomitant]
     Route: 065

REACTIONS (3)
  - AMNESIA [None]
  - BLOOD PRESSURE INCREASED [None]
  - HEADACHE [None]
